FAERS Safety Report 5761684-9 (Version None)
Quarter: 2008Q2

REPORT INFORMATION
  Report Type: 
  Country: None (occurrence: None)
  Receive Date: 20080606
  Receipt Date: 20080526
  Transmission Date: 20081010
  Serious: Yes (Hospitalization, Other)
  Sender: FDA-Public Use
  Company Number: DE-PFIZER INC-2008018271

PATIENT
  Sex: Male

DRUGS (8)
  1. LYRICA [Suspect]
     Indication: CENTRAL PAIN SYNDROME
     Route: 048
  2. PLAVIX [Concomitant]
  3. EPROSARTAN MESILATE/HYDROCHLOROTHIAZIDE [Concomitant]
  4. EBRANTIL [Concomitant]
  5. AMLODIPINE [Concomitant]
  6. BELOC ZOK [Concomitant]
  7. CYMBALTA [Concomitant]
  8. TAMSULOSIN HCL [Concomitant]

REACTIONS (5)
  - ACTIVITIES OF DAILY LIVING IMPAIRED [None]
  - FALL [None]
  - FEMORAL NECK FRACTURE [None]
  - PAIN [None]
  - TRANCE [None]
